FAERS Safety Report 9182097 (Version 1)
Quarter: 2013Q1

REPORT INFORMATION
  Report Type: Spontaneous
  Country: US (occurrence: None)
  Receive Date: 20120622
  Receipt Date: 20120622
  Transmission Date: 20140127
  Serious: Yes (Disabling)
  Sender: FDA-Public Use
  Company Number: US-PIERREL-00056

PATIENT
  Age: 56 Year
  Sex: Female
  Weight: 58.97 kg

DRUGS (3)
  1. AMOXICILLIN [Concomitant]
  2. MEDROL [Concomitant]
  3. ORABLOC [Suspect]
     Indication: LOCAL ANAESTHESIA
     Dates: start: 20120209, end: 20120209

REACTIONS (2)
  - Trismus [None]
  - Injection site pain [None]
